FAERS Safety Report 9819225 (Version 1)
Quarter: 2014Q1

REPORT INFORMATION
  Report Type: Spontaneous
  Country: CN (occurrence: None)
  Receive Date: 20140113
  Receipt Date: 20140113
  Transmission Date: 20141002
  Serious: Yes (Other)
  Sender: FDA-Public Use
  Company Number: CN-JNJFOC-20140102170

PATIENT
  Age: 46 Year
  Sex: 0

DRUGS (1)
  1. DECITABINE [Suspect]
     Indication: ACUTE MYELOID LEUKAEMIA
     Dosage: IN 1 DAY
     Route: 042

REACTIONS (2)
  - Haematotoxicity [None]
  - Stem cell transplant [None]
